FAERS Safety Report 24922947 (Version 1)
Quarter: 2025Q1

REPORT INFORMATION
  Report Type: Report from Study
  Country: US (occurrence: US)
  Receive Date: 20250204
  Receipt Date: 20250204
  Transmission Date: 20250409
  Serious: Yes (Hospitalization)
  Sender: PFIZER
  Company Number: US-PFIZER INC-202500023411

PATIENT
  Age: 68 Year
  Sex: Male

DRUGS (10)
  1. BRAFTOVI [Suspect]
     Active Substance: ENCORAFENIB
     Dosage: 75MG CAPSULE TAKE 6 CAPSULES BY MOUTH DAILY
     Route: 048
     Dates: start: 202312
  2. BRAFTOVI [Suspect]
     Active Substance: ENCORAFENIB
  3. MEKTOVI [Suspect]
     Active Substance: BINIMETINIB
     Dosage: 15MG TABLET TAKE BY MOUTH 2 TABLETS TWICE DAILY
     Route: 048
     Dates: start: 202312
  4. MEKTOVI [Suspect]
     Active Substance: BINIMETINIB
  5. ATORVASTATIN CALCIUM [Concomitant]
     Active Substance: ATORVASTATIN CALCIUM
  6. AZELASTINE HYDROCHLORIDE [Concomitant]
     Active Substance: AZELASTINE HYDROCHLORIDE
  7. ELIQUIS [Concomitant]
     Active Substance: APIXABAN
  8. FLUTICASONE PROPIONATE [Concomitant]
     Active Substance: FLUTICASONE PROPIONATE
  9. METOPROLOL SUCCINATE [Concomitant]
     Active Substance: METOPROLOL SUCCINATE
  10. TRIAMCINOLONE ACETONIDE [Concomitant]
     Active Substance: TRIAMCINOLONE ACETONIDE

REACTIONS (3)
  - Visual impairment [Recovering/Resolving]
  - Second primary malignancy [Recovering/Resolving]
  - Lung neoplasm malignant [Recovering/Resolving]
